FAERS Safety Report 10591172 (Version 2)
Quarter: 2014Q4

REPORT INFORMATION
  Report Type: Other
  Country: GB (occurrence: GB)
  Receive Date: 20141118
  Receipt Date: 20141224
  Transmission Date: 20150529
  Serious: Yes (Other)
  Sender: FDA-Public Use
  Company Number: GB-SHIRE-GB201407972

PATIENT
  Age: 81 Year
  Sex: Female

DRUGS (2)
  1. REPLAGAL [Suspect]
     Active Substance: AGALSIDASE ALFA
     Dosage: 10.5 MG (ALTERNATING WITH 14 MG), 1X/2WKS
     Route: 041
     Dates: start: 201204
  2. REPLAGAL [Suspect]
     Active Substance: AGALSIDASE ALFA
     Indication: FABRY^S DISEASE
     Dosage: 14 MG (ALTERNATING WITH 10.5 MG), 1X/2WKS
     Route: 041
     Dates: start: 201204

REACTIONS (4)
  - Unevaluable event [Recovering/Resolving]
  - Amnesia [Recovering/Resolving]
  - Hypoaesthesia [Recovering/Resolving]
  - Fatigue [Recovering/Resolving]

NARRATIVE: CASE EVENT DATE: 20141112
